FAERS Safety Report 4699906-8 (Version None)
Quarter: 2005Q2

REPORT INFORMATION
  Report Type: 
  Country: None (occurrence: None)
  Receive Date: 20050624
  Receipt Date: 20050609
  Transmission Date: 20051028
  Serious: Yes (Death)
  Sender: FDA-Public Use
  Company Number: 2005S1004709

PATIENT
  Age: 71 Year
  Sex: Female

DRUGS (9)
  1. CLOZAPINE [Suspect]
     Indication: SCHIZOPHRENIA
     Dosage: 300 MG; HS; PO
     Route: 048
     Dates: start: 20021101, end: 20050501
  2. DILTIAZEM [Concomitant]
  3. DIHYDROERGOTOXINE [Concomitant]
  4. MESILATE [Concomitant]
  5. PHENYTOIN SODIUM [Concomitant]
  6. RISPERIDONE [Concomitant]
  7. POTASSIUM CHLORIDE [Concomitant]
  8. LISINOPRIL [Concomitant]
  9. MORPHINE [Concomitant]

REACTIONS (1)
  - DEATH [None]
